FAERS Safety Report 16904971 (Version 2)
Quarter: 2020Q1

REPORT INFORMATION
  Report Type: Report from Study
  Country: US (occurrence: US)
  Receive Date: 20191010
  Receipt Date: 20200129
  Transmission Date: 20200409
  Serious: Yes (Hospitalization)
  Sender: FDA-Public Use
  Company Number: US-EISAI MEDICAL RESEARCH-EC-2019-062542

PATIENT
  Age: 60 Year
  Sex: Male
  Weight: 72.72 kg

DRUGS (23)
  1. AMOXICILLIN. [Concomitant]
     Active Substance: AMOXICILLIN
  2. MAG-OX [Concomitant]
     Active Substance: MAGNESIUM OXIDE
  3. ASPIRIN. [Concomitant]
     Active Substance: ASPIRIN
  4. OMEGA-3 ACID ETHYL EST [Concomitant]
  5. MIRTAZAPINE. [Concomitant]
     Active Substance: MIRTAZAPINE
  6. LENVIMA [Suspect]
     Active Substance: LENVATINIB
     Indication: HEPATOCELLULAR CARCINOMA
     Route: 048
     Dates: start: 20190913
  7. LENVIMA [Suspect]
     Active Substance: LENVATINIB
     Indication: METASTASES TO LUNG
     Route: 048
  8. IRON [Concomitant]
     Active Substance: IRON
  9. VITAMIN B12 [Concomitant]
     Active Substance: CYANOCOBALAMIN
  10. SULFAMETHOXAZOLE-TRIMETHOPRIM [Concomitant]
     Active Substance: SULFAMETHOXAZOLE\TRIMETHOPRIM
  11. FLUOROURACIL. [Concomitant]
     Active Substance: FLUOROURACIL
  12. PROBIOTIC [Concomitant]
     Active Substance: PROBIOTICS NOS
  13. COLACE [Concomitant]
     Active Substance: DOCUSATE SODIUM
  14. ANTIOXIDANT FORMULA [Concomitant]
  15. VITAMIN C [Concomitant]
     Active Substance: ASCORBIC ACID
  16. VITAMIN D3 [Concomitant]
     Active Substance: CHOLECALCIFEROL
  17. TACROLIMUS. [Concomitant]
     Active Substance: TACROLIMUS
  18. URSODIOL. [Concomitant]
     Active Substance: URSODIOL
  19. SENNA-S [Concomitant]
     Active Substance: DOCUSATE SODIUM\SENNOSIDES
  20. TURMERIC [Concomitant]
     Active Substance: HERBALS\TURMERIC
  21. PROTONIX [Concomitant]
     Active Substance: PANTOPRAZOLE SODIUM
  22. VITAMIN E [Concomitant]
     Active Substance: .ALPHA.-TOCOPHEROL
  23. AMLODIPINE [Concomitant]
     Active Substance: AMLODIPINE BESYLATE

REACTIONS (5)
  - Hepatic enzyme increased [Recovering/Resolving]
  - Malignant neoplasm progression [Unknown]
  - Off label use [Unknown]
  - Blood bilirubin increased [Recovering/Resolving]
  - Blood pressure increased [Recovering/Resolving]

NARRATIVE: CASE EVENT DATE: 20190919
